FAERS Safety Report 15577079 (Version 3)
Quarter: 2018Q4

REPORT INFORMATION
  Report Type: Spontaneous
  Country: PL (occurrence: PL)
  Receive Date: 20181101
  Receipt Date: 20181114
  Transmission Date: 20190205
  Serious: Yes (Death)
  Sender: FDA-Public Use
  Company Number: PL-BAXTER-2018BAX026719

PATIENT
  Sex: Female

DRUGS (4)
  1. VINCRISTINE [Suspect]
     Active Substance: VINCRISTINE
     Indication: CLEAR CELL SARCOMA OF SOFT TISSUE
     Dosage: 5 CYCLES (CYVADIC REGIMEN)
     Route: 065
     Dates: start: 201401
  2. DACARBAZINE. [Suspect]
     Active Substance: DACARBAZINE
     Indication: CLEAR CELL SARCOMA OF SOFT TISSUE
     Dosage: 5 CYCLES (CYVADIC REGIMEN)
     Route: 065
     Dates: start: 201401
  3. DOXORUBICIN [Suspect]
     Active Substance: DOXORUBICIN
     Indication: CLEAR CELL SARCOMA OF SOFT TISSUE
     Dosage: 5 CYCLES (CYVADIC REGIMEN)
     Route: 065
     Dates: start: 201401
  4. ENDOXAN [Suspect]
     Active Substance: CYCLOPHOSPHAMIDE
     Indication: CLEAR CELL SARCOMA OF SOFT TISSUE
     Dosage: 5 CYCLES (CYVADIC REGIMEN)
     Route: 065
     Dates: start: 201401

REACTIONS (2)
  - Malignant neoplasm progression [Fatal]
  - Clear cell sarcoma of soft tissue [Fatal]
